FAERS Safety Report 6819793-9 (Version None)
Quarter: 2010Q3

REPORT INFORMATION
  Report Type: 
  Country: None (occurrence: None)
  Receive Date: 20100707
  Receipt Date: 20100623
  Transmission Date: 20110219
  Serious: Yes (Hospitalization, Other)
  Sender: FDA-Public Use
  Company Number: DE-SANOFI-AVENTIS-2010SA036574

PATIENT
  Age: 66 Year
  Sex: Male
  Weight: 87 kg

DRUGS (7)
  1. MULTAQ [Suspect]
     Indication: ATRIAL FIBRILLATION
     Route: 048
  2. PHENPROCOUMON [Concomitant]
     Indication: ANTICOAGULANT THERAPY
     Dosage: ACCORDING TO INR
     Route: 048
  3. METHIZOL [Concomitant]
     Indication: HYPERTHYROIDISM
     Route: 048
  4. TORASEMIDE [Concomitant]
     Indication: HYPERTENSION
     Route: 048
  5. HYDROCHLOROTHIAZIDE/OLMESARTAN MEDOXOMIL [Concomitant]
     Indication: HYPERTENSION
     Dosage: DOSAGE: 20/12.5 MG DAILY
     Route: 048
  6. METOPROLOL [Concomitant]
     Indication: HYPERTENSION
     Route: 048
  7. METOPROLOL [Concomitant]
     Indication: PROPHYLAXIS
     Route: 048

REACTIONS (1)
  - VENTRICULAR TACHYCARDIA [None]
